FAERS Safety Report 19893392 (Version 2)
Quarter: 2021Q4

REPORT INFORMATION
  Report Type: Other
  Country: US (occurrence: US)
  Receive Date: 20210929
  Receipt Date: 20211006
  Transmission Date: 20220304
  Serious: Yes (Hospitalization)
  Sender: FDA-Public Use
  Company Number: US-ROCHE-2917851

PATIENT
  Sex: Female

DRUGS (1)
  1. OCREVUS [Suspect]
     Active Substance: OCRELIZUMAB
     Indication: Relapsing multiple sclerosis
     Route: 065
     Dates: start: 202102, end: 202102

REACTIONS (4)
  - Infection [Unknown]
  - Fall [Recovered/Resolved]
  - Hypotension [Recovered/Resolved]
  - Magnetic resonance imaging abnormal [Unknown]
